FAERS Safety Report 15044742 (Version 3)
Quarter: 2018Q3

REPORT INFORMATION
  Report Type: Spontaneous
  Country: BR (occurrence: BR)
  Receive Date: 20180621
  Receipt Date: 20180724
  Transmission Date: 20181010
  Serious: Yes (Death, Hospitalization, Other)
  Sender: FDA-Public Use
  Company Number: BR-ELI_LILLY_AND_COMPANY-BR201806005713

PATIENT
  Sex: Female

DRUGS (1)
  1. FORTEO [Suspect]
     Active Substance: TERIPARATIDE
     Indication: PRODUCT USED FOR UNKNOWN INDICATION
     Dosage: UNK, UNKNOWN
     Route: 065
     Dates: start: 20160728, end: 20180603

REACTIONS (6)
  - Pneumonia [Unknown]
  - Death [Fatal]
  - Swelling [Unknown]
  - Fall [Unknown]
  - Spinal fracture [Unknown]
  - Head injury [Unknown]

NARRATIVE: CASE EVENT DATE: 2018
